FAERS Safety Report 8783405 (Version 1)
Quarter: 2012Q4

REPORT INFORMATION
  Report Type: 
  Country: FR (occurrence: FR)
  Receive Date: 20120913
  Receipt Date: 20120913
  Transmission Date: 20130627
  Serious: Yes (Hospitalization)
  Sender: FDA-Public Use
  Company Number: FR-UCBSA-065330

PATIENT
  Age: 81 Year
  Sex: Female

DRUGS (9)
  1. KEPPRA [Suspect]
     Indication: EPILEPSY
     Dosage: DAILY DOSE:250 MG
     Route: 048
     Dates: start: 20120122, end: 20120224
  2. TRILEPTAL [Suspect]
     Indication: EPILEPSY
     Route: 048
     Dates: start: 20120122, end: 20120224
  3. DIFFU-K [Concomitant]
     Route: 048
     Dates: start: 20120122
  4. ZOLOFT [Concomitant]
     Dosage: UNKNOWN DOSE
  5. LEVOTHYROX [Concomitant]
     Dosage: DAILY DOSE:75 MCG FOR A LONG TIME
     Route: 048
  6. MOPRAL [Concomitant]
     Dosage: DAILY DOSE:20 MG
     Route: 048
     Dates: start: 20120122
  7. KARDEGIC [Concomitant]
     Dosage: DAILY DOSE:160 MG
     Route: 048
     Dates: start: 20120122
  8. RIVOTRIL [Concomitant]
     Indication: EPILEPSY
     Dosage: 2.5MG/ML
     Route: 048
     Dates: start: 20120122, end: 2012
  9. RIVOTRIL [Concomitant]
     Indication: EPILEPSY
     Dosage: INCREASED DOSE
     Route: 048
     Dates: start: 2012

REACTIONS (2)
  - Rash maculo-papular [Recovered/Resolved]
  - Purpura [Unknown]
